FAERS Safety Report 6407424-1 (Version None)
Quarter: 2009Q4

REPORT INFORMATION
  Report Type: 
  Country: None (occurrence: None)
  Receive Date: 20091020
  Receipt Date: 20091008
  Transmission Date: 20100525
  Serious: Yes (Other)
  Sender: FDA-Public Use
  Company Number: US-MERCK-0910USA02090

PATIENT
  Sex: Female

DRUGS (1)
  1. PRIMAXIN [Suspect]
     Route: 042

REACTIONS (2)
  - ALOPECIA [None]
  - VOCAL CORD PARALYSIS [None]
